FAERS Safety Report 8019408-0 (Version None)
Quarter: 2012Q1

REPORT INFORMATION
  Report Type: 
  Country: None (occurrence: None)
  Receive Date: 20120103
  Receipt Date: 20111224
  Transmission Date: 20120608
  Serious: Yes (Hospitalization)
  Sender: FDA-Public Use
  Company Number: PHHY2011AU112602

PATIENT
  Sex: Female

DRUGS (4)
  1. ACETAMINOPHEN AND CODEINE PHOSPHATE [Suspect]
  2. CLOZARIL [Suspect]
     Dosage: 600 MG
     Dates: start: 20090928
  3. CLOZARIL [Suspect]
     Dosage: 500 - 1000 MG
  4. XANAX [Suspect]

REACTIONS (3)
  - SEDATION [None]
  - LOSS OF CONSCIOUSNESS [None]
  - OVERDOSE [None]
